FAERS Safety Report 19135159 (Version 1)
Quarter: 2021Q2

REPORT INFORMATION
  Report Type: Spontaneous
  Country: US (occurrence: AR)
  Receive Date: 20210414
  Receipt Date: 20210414
  Transmission Date: 20210717
  Serious: Yes (Other)
  Sender: FDA-Public Use
  Company Number: AR-BIOMARINAP-AR-2021-135982

PATIENT
  Age: 16 Year
  Sex: Male

DRUGS (1)
  1. ALDURAZYME [Suspect]
     Active Substance: LARONIDASE
     Indication: MUCOPOLYSACCHARIDOSIS I
     Dosage: 7 DOSAGE FORM
     Route: 065
     Dates: start: 2012

REACTIONS (4)
  - Corneal operation [Unknown]
  - Glaucoma surgery [Unknown]
  - Tenoplasty [Unknown]
  - Corneal abscess [Unknown]

NARRATIVE: CASE EVENT DATE: 2014
